FAERS Safety Report 7298223-X (Version None)
Quarter: 2011Q1

REPORT INFORMATION
  Report Type: 
  Country: None (occurrence: None)
  Receive Date: 20110217
  Receipt Date: 20100709
  Transmission Date: 20110831
  Serious: Yes (Other)
  Sender: FDA-Public Use
  Company Number: US-BAYER-201029488NA

PATIENT
  Sex: Female

DRUGS (13)
  1. YASMIN [Suspect]
     Indication: ACNE
     Dosage: UNK MG, UNK
  2. FLONASE [Concomitant]
     Dosage: 50 ?G, UNK
  3. CIPRO [Concomitant]
     Dosage: 250 MG, BID
  4. BIAXIN [Concomitant]
     Dosage: 500 MG, BID
  5. ALLEGRA [Concomitant]
     Dosage: 180 MG, QD
  6. CONCERTA [Concomitant]
  7. SINGULAIR [Concomitant]
     Dosage: 10 MG, QD
  8. ZYRTEC [Concomitant]
     Dosage: 10 MG, OM
  9. OMEPRAZOLE [Concomitant]
     Dosage: 20 MG, BID
  10. ZITHROMAX [Concomitant]
     Indication: SINUSITIS
  11. ADVAIR [Concomitant]
  12. YAZ [Suspect]
     Indication: ACNE
     Dosage: UNK MG, UNK
  13. OCELLA [Suspect]
     Indication: ACNE
     Dosage: UNK

REACTIONS (2)
  - CHOLELITHIASIS [None]
  - ABDOMINAL PAIN UPPER [None]
